FAERS Safety Report 19873159 (Version 1)
Quarter: 2021Q3

REPORT INFORMATION
  Report Type: Spontaneous
  Country: DE (occurrence: DE)
  Receive Date: 20210923
  Receipt Date: 20210923
  Transmission Date: 20211014
  Serious: Yes (Hospitalization)
  Sender: FDA-Public Use
  Company Number: DE-TEVA-2021-DE-1953072

PATIENT
  Age: 59 Year
  Sex: Female
  Weight: 65 kg

DRUGS (5)
  1. METOPROLOL. [Concomitant]
     Active Substance: METOPROLOL
     Dosage: 95 MILLIGRAM DAILY; 1?0?0?0
  2. CARBOPLATIN. [Suspect]
     Active Substance: CARBOPLATIN
     Dosage: SCHEME
  3. RAMIPRIL. [Concomitant]
     Active Substance: RAMIPRIL
     Dosage: 5 MILLIGRAM DAILY; 0?0?1?0
  4. PACLITAXEL. [Suspect]
     Active Substance: PACLITAXEL
     Dosage: SCHEME
  5. HYDROCHLOROTHIAZID/RAMIPRIL [Concomitant]
     Active Substance: HYDROCHLOROTHIAZIDE\RAMIPRIL
     Dosage: 1 DOSAGE FORMS DAILY; 25|5 MG, 1?0?0?0

REACTIONS (3)
  - Condition aggravated [Recovering/Resolving]
  - Flank pain [Recovering/Resolving]
  - Systemic infection [Recovering/Resolving]
